FAERS Safety Report 8780246 (Version 1)
Quarter: 2012Q4

REPORT INFORMATION
  Report Type: 
  Country: US (occurrence: None)
  Receive Date: 20120904
  Receipt Date: 20120904
  Transmission Date: 20130627
  Serious: Yes (Hospitalization)
  Sender: FDA-Public Use
  Company Number: None

PATIENT
  Sex: Female
  Weight: 106.5 kg

DRUGS (1)
  1. ZOLEDRONIC ACID [Suspect]
     Dates: end: 20120306

REACTIONS (2)
  - Oral pain [None]
  - Osteonecrosis of jaw [None]
